FAERS Safety Report 11773249 (Version 1)
Quarter: 2015Q4

REPORT INFORMATION
  Report Type: Report from Study
  Country: US (occurrence: US)
  Receive Date: 20151124
  Receipt Date: 20151124
  Transmission Date: 20160304
  Serious: Yes (Hospitalization, Other)
  Sender: FDA-Public Use
  Company Number: US-BAYER-2015-471324

PATIENT
  Age: 73 Year
  Sex: Female

DRUGS (2)
  1. NEXAVAR [Suspect]
     Active Substance: SORAFENIB
     Indication: HEPATIC CANCER
     Dosage: 400MG, BID
     Route: 048
     Dates: start: 20151031, end: 20151101
  2. NEXAVAR [Suspect]
     Active Substance: SORAFENIB
     Indication: HEPATIC CANCER
     Dosage: 200MG, BID
     Route: 048
     Dates: start: 20151102, end: 20151109

REACTIONS (7)
  - Haematemesis [None]
  - Platelet count decreased [None]
  - Epistaxis [None]
  - Heart rate increased [None]
  - Blood pressure increased [None]
  - Contusion [None]
  - Constipation [None]

NARRATIVE: CASE EVENT DATE: 201511
